FAERS Safety Report 14856399 (Version 1)
Quarter: 2018Q2

REPORT INFORMATION
  Report Type: Spontaneous
  Country: US (occurrence: US)
  Receive Date: 20180507
  Receipt Date: 20180507
  Transmission Date: 20180711
  Serious: No
  Sender: FDA-Public Use
  Company Number: US-ROCHE-2047192

PATIENT
  Age: 80 Year
  Sex: Male

DRUGS (2)
  1. STEROIDS - UNKNOWN TYPE [Concomitant]
  2. ESBRIET [Suspect]
     Active Substance: PIRFENIDONE
     Indication: PRODUCT USED FOR UNKNOWN INDICATION
     Dosage: ONGOING:NO
     Route: 065

REACTIONS (1)
  - Rash [Recovered/Resolved]
